FAERS Safety Report 6388371-0 (Version None)
Quarter: 2009Q4

REPORT INFORMATION
  Report Type: 
  Country: None (occurrence: None)
  Receive Date: 20091005
  Receipt Date: 20090928
  Transmission Date: 20100525
  Serious: Yes (Other)
  Sender: FDA-Public Use
  Company Number: GB-ELI_LILLY_AND_COMPANY-GB200909006615

PATIENT
  Sex: Female

DRUGS (3)
  1. BYETTA [Suspect]
     Dosage: UNK, UNKNOWN
     Route: 065
  2. EPILIM [Concomitant]
     Indication: EPILEPSY
     Dosage: 600 MG, EACH MORNING
     Route: 065
  3. EPILIM [Concomitant]
     Dosage: 400 MG, EACH EVENING
     Route: 065

REACTIONS (1)
  - CONVULSION [None]
